FAERS Safety Report 19550762 (Version 2)
Quarter: 2022Q1

REPORT INFORMATION
  Report Type: Spontaneous
  Country: US (occurrence: US)
  Receive Date: 20210714
  Receipt Date: 20220321
  Transmission Date: 20220424
  Serious: No
  Sender: FDA-Public Use
  Company Number: US-BLUEPRINT MEDICINES CORPORATION-SP-US-2021-001046

PATIENT
  Age: 73 Year
  Sex: Female

DRUGS (6)
  1. AYVAKIT [Suspect]
     Active Substance: AVAPRITINIB
     Indication: Gastrointestinal stromal tumour
     Route: 048
     Dates: start: 20200208
  2. AYVAKIT [Suspect]
     Active Substance: AVAPRITINIB
     Dosage: 5 TIMES WEEKLY
     Route: 048
     Dates: start: 20200208
  3. AMLODIPINE [Concomitant]
     Active Substance: AMLODIPINE BESYLATE
     Indication: Product used for unknown indication
     Route: 065
  4. JUBLIA [Concomitant]
     Active Substance: EFINACONAZOLE
     Indication: Product used for unknown indication
     Route: 065
  5. ESTRADIOL [Concomitant]
     Active Substance: ESTRADIOL
     Indication: Product used for unknown indication
     Route: 061
  6. KRILL OIL [Concomitant]
     Active Substance: DIETARY SUPPLEMENT\KRILL OIL
     Indication: Product used for unknown indication
     Route: 065

REACTIONS (2)
  - Onychomycosis [Unknown]
  - Off label use [Unknown]
